FAERS Safety Report 4280868-2 (Version None)
Quarter: 2004Q1

REPORT INFORMATION
  Report Type: 
  Country: None (occurrence: None)
  Receive Date: 20040128
  Receipt Date: 20040128
  Transmission Date: 20041129
  Serious: Yes (Death, Hospitalization)
  Sender: FDA-Public Use
  Company Number: None

PATIENT
  Age: 66 Year
  Sex: Female
  Weight: 66 kg

DRUGS (10)
  1. TAXOTERE [Suspect]
     Indication: LUNG NEOPLASM MALIGNANT
     Dosage: 45.09 MG Q WEEK IV
     Route: 042
     Dates: start: 20030827, end: 20031203
  2. GEMCITABINE [Suspect]
     Indication: LUNG NEOPLASM MALIGNANT
     Dosage: 650 MG Q WEEK IV
     Route: 042
     Dates: start: 20030827, end: 20031203
  3. LEXAPRO [Concomitant]
  4. FERROUS SULFATE TAB [Concomitant]
  5. NEXIUM [Concomitant]
  6. LOVENOX [Concomitant]
  7. LIPITOR [Concomitant]
  8. NORVASC [Concomitant]
  9. TOPROL-XL [Concomitant]
  10. FOSAMAX [Concomitant]

REACTIONS (1)
  - PULMONARY EMBOLISM [None]
